FAERS Safety Report 9767174 (Version 1)
Quarter: 2013Q4

REPORT INFORMATION
  Report Type: Spontaneous
  Country: US (occurrence: None)
  Receive Date: 20131216
  Receipt Date: 20131216
  Transmission Date: 20140711
  Serious: Yes (Life-Threatening, Hospitalization, Other)
  Sender: FDA-Public Use
  Company Number: None

PATIENT
  Age: 57 Year
  Sex: Female

DRUGS (1)
  1. LOVASTATIN [Suspect]

REACTIONS (3)
  - Respiratory failure [None]
  - Depression [None]
  - Chronic obstructive pulmonary disease [None]
